FAERS Safety Report 11722314 (Version 1)
Quarter: 2015Q4

REPORT INFORMATION
  Report Type: Spontaneous
  Country: US (occurrence: None)
  Receive Date: 20151110
  Receipt Date: 20151110
  Transmission Date: 20160304
  Serious: Yes (Hospitalization)
  Sender: FDA-Public Use
  Company Number: None

PATIENT
  Age: 79 Year
  Sex: Male

DRUGS (2)
  1. 5-FU [Suspect]
     Active Substance: FLUOROURACIL
     Indication: COLON CANCER
     Dates: start: 20130815, end: 20131016
  2. LEUCOVORIN. [Suspect]
     Active Substance: LEUCOVORIN
     Dates: start: 20130815, end: 20131016

REACTIONS (17)
  - Sepsis [None]
  - Drug-induced liver injury [None]
  - Jaundice [None]
  - Blood lactic acid increased [None]
  - Ascites [None]
  - Cholestasis [None]
  - Biliary tract disorder [None]
  - Hepatocellular injury [None]
  - Serology positive [None]
  - Febrile neutropenia [None]
  - Alanine aminotransferase increased [None]
  - Hepatic steatosis [None]
  - Hepatic siderosis [None]
  - Small intestinal obstruction [None]
  - Hepatic fibrosis [None]
  - Mitochondrial toxicity [None]
  - Aspartate aminotransferase increased [None]

NARRATIVE: CASE EVENT DATE: 20131020
